FAERS Safety Report 21692062 (Version 2)
Quarter: 2023Q4

REPORT INFORMATION
  Report Type: Spontaneous
  Country: BR (occurrence: None)
  Receive Date: 20221207
  Receipt Date: 20231027
  Transmission Date: 20240110
  Serious: Yes (Other)
  Sender: FDA-Public Use
  Company Number: BR-ROCHE-3232089

PATIENT
  Age: 54 Year
  Sex: Female
  Weight: 75 kg

DRUGS (7)
  1. RIVOTRIL [Suspect]
     Active Substance: CLONAZEPAM
     Indication: Headache
     Dosage: 2 TABLET, DAILY (WITH A DOSAGE OF 1 TABLET IN THE MORNING AND 1 TABLET IN THE EVENING), ONGOING
     Route: 048
     Dates: start: 1994
  2. RIVOTRIL [Suspect]
     Active Substance: CLONAZEPAM
     Dosage: 2 TABLETS/DAY
     Route: 048
     Dates: start: 2010
  3. RIVOTRIL [Suspect]
     Active Substance: CLONAZEPAM
     Indication: Headache
     Route: 048
     Dates: start: 2006, end: 2006
  4. LOSARTAN [Concomitant]
     Active Substance: LOSARTAN
     Indication: Hypertension
     Dosage: 2 TABLET DAILY.
     Route: 048
     Dates: start: 2019
  5. ATENOLOL [Concomitant]
     Active Substance: ATENOLOL
     Indication: Hypertension
     Dosage: 1 TABLET DAILY.
     Route: 048
     Dates: start: 2019
  6. TORSILAX [Concomitant]
     Active Substance: ACETAMINOPHEN\CAFFEINE\CARISOPRODOL\DICLOFENAC
     Indication: Nasal septum deviation
     Dosage: 1 TABLET IF NECESSARY
     Route: 048
     Dates: start: 2012
  7. DIPYRONE [Concomitant]
     Active Substance: DIPYRONE

REACTIONS (10)
  - Drug dependence [Not Recovered/Not Resolved]
  - Off label use [Unknown]
  - Withdrawal syndrome [Recovering/Resolving]
  - Emotional poverty [Not Recovered/Not Resolved]
  - Feeling abnormal [Not Recovered/Not Resolved]
  - Head titubation [Not Recovered/Not Resolved]
  - Sluggishness [Not Recovered/Not Resolved]
  - Irritability [Not Recovered/Not Resolved]
  - Insomnia [Not Recovered/Not Resolved]
  - Product use issue [Unknown]

NARRATIVE: CASE EVENT DATE: 20050616
